FAERS Safety Report 7944767-4 (Version None)
Quarter: 2011Q4

REPORT INFORMATION
  Report Type: 
  Country: None (occurrence: None)
  Receive Date: 20111129
  Receipt Date: 20111125
  Transmission Date: 20120403
  Serious: Yes (Death)
  Sender: FDA-Public Use
  Company Number: VE-PFIZER INC-2011285490

PATIENT
  Age: 61 Year
  Sex: Female

DRUGS (1)
  1. CADUET [Suspect]
     Dosage: 5 MG/ 20 MG, UNK
     Route: 048

REACTIONS (1)
  - GASTRIC CANCER [None]
